FAERS Safety Report 4284952-9 (Version None)
Quarter: 2004Q1

REPORT INFORMATION
  Report Type: 
  Country: None (occurrence: None)
  Receive Date: 20040204
  Receipt Date: 20031016
  Transmission Date: 20041129
  Serious: Yes (Other)
  Sender: FDA-Public Use
  Company Number: PHEH2003US09548

PATIENT
  Age: 21 Year
  Sex: Female

DRUGS (1)
  1. ZELNORM [Suspect]
     Indication: IRRITABLE BOWEL SYNDROME
     Dosage: 6 MG, BID
     Route: 048
     Dates: start: 20030826, end: 20030901

REACTIONS (2)
  - DIARRHOEA HAEMORRHAGIC [None]
  - IMPAIRED GASTRIC EMPTYING [None]
